FAERS Safety Report 8978846 (Version 2)
Quarter: 2013Q1

REPORT INFORMATION
  Report Type: Spontaneous
  Country: US (occurrence: US)
  Receive Date: 20121221
  Receipt Date: 20130114
  Transmission Date: 20140127
  Serious: Yes (Life-Threatening, Other)
  Sender: FDA-Public Use
  Company Number: US-ENDO PHARMACEUTICALS INC.-OPCR20122110

PATIENT
  Sex: Male
  Weight: 69.01 kg

DRUGS (4)
  1. OPANA ER [Suspect]
     Indication: BACK PAIN
     Dates: start: 2012
  2. OPANA ER [Suspect]
     Indication: DRUG ABUSE
  3. OPANA ER [Concomitant]
     Indication: BACK PAIN
     Route: 048
     Dates: end: 2012
  4. OPANA [Concomitant]
     Indication: PAIN
     Route: 048

REACTIONS (7)
  - Blindness unilateral [Recovering/Resolving]
  - Retinal artery embolism [Recovering/Resolving]
  - Incorrect route of drug administration [Unknown]
  - Wrong technique in drug usage process [Unknown]
  - Wrong technique in drug usage process [Unknown]
  - Drug abuse [Unknown]
  - Drug ineffective [Unknown]
